FAERS Safety Report 10699988 (Version 1)
Quarter: 2015Q1

REPORT INFORMATION
  Report Type: Spontaneous
  Country: US (occurrence: None)
  Receive Date: 20150107
  Receipt Date: 20150107
  Transmission Date: 20150721
  Serious: Yes (Death, Hospitalization, Other)
  Sender: FDA-Public Use
  Company Number: US-ZYDUS-006283

PATIENT
  Age: 47 Year
  Sex: Male

DRUGS (5)
  1. PREDNISONE (PREDNISONE) [Suspect]
     Active Substance: PREDNISONE
     Route: 048
  2. VANCOMYCIN (VANCOMYCIN) [Suspect]
     Active Substance: VANCOMYCIN
  3. TOBRAMYCIN. [Suspect]
     Active Substance: TOBRAMYCIN
  4. IMMUNOGLOBULIN [Concomitant]
     Active Substance: HUMAN IMMUNOGLOBULIN G
  5. AZATHIOPRINE (AZATHIOPRINE) [Suspect]
     Active Substance: AZATHIOPRINE

REACTIONS (13)
  - Toxicity to various agents [None]
  - Acute kidney injury [None]
  - Delirium [None]
  - Large intestine perforation [None]
  - Wound dehiscence [None]
  - Acinetobacter bacteraemia [None]
  - Infection [None]
  - Dyspnoea [None]
  - Leukopenia [None]
  - Respiratory disorder [None]
  - Mental status changes [None]
  - Hypotension [None]
  - Fungal sepsis [None]
